FAERS Safety Report 25714827 (Version 1)
Quarter: 2025Q3

REPORT INFORMATION
  Report Type: Spontaneous
  Country: EU (occurrence: EU)
  Receive Date: 20250822
  Receipt Date: 20250822
  Transmission Date: 20251020
  Serious: Yes (Other)
  Sender: AMGEN
  Company Number: EU-AMGEN-DEUSP2025162897

PATIENT
  Age: 52 Year
  Sex: Female

DRUGS (2)
  1. ADALIMUMAB [Suspect]
     Active Substance: ADALIMUMAB
     Indication: Acute macular neuroretinopathy
     Route: 065
  2. METHOTREXATE [Suspect]
     Active Substance: METHOTREXATE
     Indication: Acute macular neuroretinopathy
     Route: 065

REACTIONS (10)
  - Acute macular neuroretinopathy [Unknown]
  - Social avoidant behaviour [Unknown]
  - Abdominal discomfort [Unknown]
  - Myalgia [Unknown]
  - Off label use [Unknown]
  - Malaise [Unknown]
  - Fatigue [Unknown]
  - Depressive symptom [Unknown]
  - Headache [Unknown]
  - Alopecia [Unknown]
